FAERS Safety Report 13281383 (Version 1)
Quarter: 2017Q1

REPORT INFORMATION
  Report Type: Spontaneous
  Country: US (occurrence: US)
  Receive Date: 20170228
  Receipt Date: 20170228
  Transmission Date: 20170428
  Serious: Yes (Other)
  Sender: FDA-Public Use
  Company Number: None

PATIENT
  Age: 29 Year
  Sex: Female
  Weight: 56.7 kg

DRUGS (1)
  1. NITROFURANTOIN MONO/MAC 100MG CA [Suspect]
     Active Substance: NITROFURANTOIN\NITROFURANTOIN MONOHYDRATE
     Indication: URINARY TRACT INFECTION
     Dates: start: 20170227, end: 20170228

REACTIONS (2)
  - Influenza like illness [None]
  - Feeling abnormal [None]

NARRATIVE: CASE EVENT DATE: 20170228
